FAERS Safety Report 9656817 (Version 1)
Quarter: 2013Q4

REPORT INFORMATION
  Report Type: Report from Study
  Country: ES (occurrence: ES)
  Receive Date: 20131030
  Receipt Date: 20131030
  Transmission Date: 20140711
  Serious: Yes (Hospitalization, Other)
  Sender: FDA-Public Use
  Company Number: ES-ELI_LILLY_AND_COMPANY-ES201310006642

PATIENT
  Sex: Male
  Weight: 43 kg

DRUGS (9)
  1. ATOMOXETINE HYDROCHLORIDE [Suspect]
     Indication: ATTENTION DEFICIT/HYPERACTIVITY DISORDER
     Dosage: 25 MG, UNKNOWN
     Route: 048
     Dates: start: 200907
  2. ATOMOXETINE HYDROCHLORIDE [Suspect]
     Dosage: 40 MG, UNKNOWN
     Route: 048
  3. ATOMOXETINE HYDROCHLORIDE [Suspect]
     Dosage: 60 MG, QD
     Route: 048
     Dates: start: 201302
  4. SINGULAIR [Suspect]
     Indication: HYPERSENSITIVITY
     Dosage: UNK
  5. MELATONINA [Concomitant]
     Indication: INSOMNIA
     Dosage: 2 MG, QD
  6. TERBASMIN [Concomitant]
     Indication: ASTHMA
     Dosage: 1 DF, PRN
  7. PROZAC                             /00724402/ [Concomitant]
  8. DEPAKINE [Concomitant]
  9. CONCERTA [Concomitant]

REACTIONS (10)
  - Headache [Recovered/Resolved]
  - Alanine aminotransferase increased [Not Recovered/Not Resolved]
  - Aspartate aminotransferase increased [Not Recovered/Not Resolved]
  - Decreased appetite [Not Recovered/Not Resolved]
  - Somnolence [Recovered/Resolved]
  - Blood uric acid [Not Recovered/Not Resolved]
  - Blood glucose increased [Not Recovered/Not Resolved]
  - Blood cholesterol increased [Not Recovered/Not Resolved]
  - Electrolyte imbalance [Not Recovered/Not Resolved]
  - Insomnia [Unknown]
